FAERS Safety Report 4486484-1 (Version None)
Quarter: 2004Q4

REPORT INFORMATION
  Report Type: 
  Country: None (occurrence: None)
  Receive Date: 20041021
  Receipt Date: 20041013
  Transmission Date: 20050328
  Serious: Yes (Other)
  Sender: FDA-Public Use
  Company Number: 200412858GDS

PATIENT
  Age: 48 Year
  Sex: Male

DRUGS (2)
  1. VARDENAFIL [Suspect]
     Indication: ERECTILE DYSFUNCTION
     Dosage: 10 MG, TOTAL DAILY, ORAL
     Route: 048
  2. CORTICOSTEROIDS [Concomitant]

REACTIONS (3)
  - HYPERGLYCAEMIA [None]
  - LEUKOCYTOSIS [None]
  - URTICARIA GENERALISED [None]
